FAERS Safety Report 7949441 (Version 5)
Quarter: 2019Q3

REPORT INFORMATION
  Report Type: Spontaneous
  Country: GB (occurrence: GB)
  Receive Date: 20110518
  Receipt Date: 20190806
  Transmission Date: 20191005
  Serious: Yes (Death, Hospitalization, Other)
  Sender: FDA-Public Use
  Company Number: GB-MYLANLABS-2011S1009190

PATIENT
  Age: 19 Year
  Sex: Female

DRUGS (8)
  1. AMOXICILLIN. [Concomitant]
     Active Substance: AMOXICILLIN
     Indication: PRODUCT USED FOR UNKNOWN INDICATION
     Dosage: UNK
  2. AMOXICILLIN. [Suspect]
     Active Substance: AMOXICILLIN
     Dosage: UNK
     Route: 065
  3. SITAXENTAN [Interacting]
     Active Substance: SITAXENTAN
     Indication: PULMONARY ARTERIAL HYPERTENSION
     Dosage: 100 MILLIGRAM, QD
     Route: 065
  4. OMEPRAZOLE. [Suspect]
     Active Substance: OMEPRAZOLE
     Indication: ILL-DEFINED DISORDER
     Dosage: UNK
     Route: 065
  5. DOMPERIDONE [Interacting]
     Active Substance: DOMPERIDONE
     Indication: PRODUCT USED FOR UNKNOWN INDICATION
     Dosage: UNK
     Route: 065
  6. AMOXICILLIN. [Suspect]
     Active Substance: AMOXICILLIN
     Indication: EAR INFECTION
     Dosage: 50 MILLIGRAM, TID
  7. SILDENAFIL. [Interacting]
     Active Substance: SILDENAFIL
     Indication: PULMONARY ARTERIAL HYPERTENSION
     Dosage: 150 MILLIGRAM, QD
  8. SILDENAFIL. [Interacting]
     Active Substance: SILDENAFIL
     Dosage: 150 MILLIGRAM, TID (450 MG QD)
     Route: 065

REACTIONS (7)
  - Coagulopathy [Fatal]
  - Liver function test abnormal [Unknown]
  - Hepatic necrosis [Fatal]
  - Brain oedema [Fatal]
  - Drug interaction [Fatal]
  - Acute hepatic failure [Fatal]
  - Jaundice [Fatal]
